FAERS Safety Report 5367454-8 (Version None)
Quarter: 2007Q2

REPORT INFORMATION
  Report Type: 
  Country: None (occurrence: None)
  Receive Date: 20070622
  Receipt Date: 20061010
  Transmission Date: 20071010
  Serious: No
  Sender: FDA-Public Use
  Company Number: US-ASTRAZENECA-2006UW19678

PATIENT
  Age: 2 Year
  Sex: Female
  Weight: 10.9 kg

DRUGS (5)
  1. PULMICORT RESPULES [Suspect]
     Indication: LUNG DISORDER
     Route: 055
     Dates: start: 20061010
  2. PULMICORT RESPULES [Suspect]
     Indication: PNEUMONIA
     Route: 055
     Dates: start: 20061010
  3. CEFZIL [Concomitant]
  4. TUSSI-DM [Concomitant]
  5. ALBUTEROL [Concomitant]

REACTIONS (2)
  - AGGRESSION [None]
  - PSYCHOMOTOR HYPERACTIVITY [None]
